FAERS Safety Report 25235766 (Version 1)
Quarter: 2025Q2

REPORT INFORMATION
  Report Type: Report from Study
  Country: CA (occurrence: CA)
  Receive Date: 20250424
  Receipt Date: 20250424
  Transmission Date: 20250717
  Serious: Yes (Other)
  Sender: AMGEN
  Company Number: CA-AMGEN-CANSL2025077934

PATIENT
  Sex: Male

DRUGS (1)
  1. REPATHA [Suspect]
     Active Substance: EVOLOCUMAB
     Indication: Arteriosclerosis
     Route: 065
     Dates: start: 20250327

REACTIONS (1)
  - Adverse drug reaction [Unknown]
